FAERS Safety Report 11370029 (Version 1)
Quarter: 2015Q3

REPORT INFORMATION
  Report Type: Spontaneous
  Country: US (occurrence: US)
  Receive Date: 20150812
  Receipt Date: 20150812
  Transmission Date: 20151125
  Serious: No
  Sender: FDA-Public Use
  Company Number: US-JNJFOC-20150719862

PATIENT
  Age: 70 Year
  Sex: Male
  Weight: 113.4 kg

DRUGS (1)
  1. INVOKANA [Suspect]
     Active Substance: CANAGLIFLOZIN
     Indication: TYPE 2 DIABETES MELLITUS
     Route: 048
     Dates: start: 201504, end: 201506

REACTIONS (3)
  - Penis disorder [Recovering/Resolving]
  - Fungal infection [Recovering/Resolving]
  - Penile pain [Recovering/Resolving]

NARRATIVE: CASE EVENT DATE: 201506
